FAERS Safety Report 24382689 (Version 1)
Quarter: 2024Q4

REPORT INFORMATION
  Report Type: Other
  Country: US (occurrence: US)
  Receive Date: 20241001
  Receipt Date: 20241001
  Transmission Date: 20250115
  Serious: Yes (Death, Other)
  Sender: DEXCEL
  Company Number: US-DEXPHARM-2024-3231

PATIENT
  Age: 61 Year

DRUGS (7)
  1. DONEPEZIL [Interacting]
     Active Substance: DONEPEZIL
  2. GABAPENTIN [Interacting]
     Active Substance: GABAPENTIN
  3. LEVETIRACETAM [Interacting]
     Active Substance: LEVETIRACETAM
     Indication: Product used for unknown indication
  4. MIRTAZAPINE [Interacting]
     Active Substance: MIRTAZAPINE
  5. TOPIRAMATE [Interacting]
     Active Substance: TOPIRAMATE
  6. TRAZODONE [Interacting]
     Active Substance: TRAZODONE HYDROCHLORIDE
  7. MEPROBAMATE [Interacting]
     Active Substance: MEPROBAMATE

REACTIONS (2)
  - Toxicity to various agents [Fatal]
  - Drug interaction [Fatal]
